FAERS Safety Report 5593191-0 (Version None)
Quarter: 2008Q1

REPORT INFORMATION
  Report Type: 
  Country: None (occurrence: None)
  Receive Date: 20080115
  Receipt Date: 20080115
  Transmission Date: 20080703
  Serious: Yes (Hospitalization)
  Sender: FDA-Public Use
  Company Number: None

PATIENT
  Age: 75 Year
  Sex: Male
  Weight: 123 kg

DRUGS (1)
  1. TAMSULOSIN HCL [Suspect]
     Dosage: 0.8MG HS PO
     Route: 048
     Dates: start: 20060803, end: 20070927

REACTIONS (1)
  - HYPOTENSION [None]
